FAERS Safety Report 7428664-9 (Version None)
Quarter: 2011Q2

REPORT INFORMATION
  Report Type: 
  Country: None (occurrence: None)
  Receive Date: 20110421
  Receipt Date: 20110413
  Transmission Date: 20111010
  Serious: No
  Sender: FDA-Public Use
  Company Number: US-BIOGENIDEC-2011BI013827

PATIENT
  Age: 26 Year
  Sex: Female

DRUGS (1)
  1. AVONEX [Suspect]
     Indication: MULTIPLE SCLEROSIS
     Route: 030
     Dates: start: 20100601, end: 20110327

REACTIONS (5)
  - NASOPHARYNGITIS [None]
  - OROPHARYNGEAL PAIN [None]
  - GENERAL SYMPTOM [None]
  - ASTHENIA [None]
  - HEADACHE [None]
